FAERS Safety Report 26192274 (Version 1)
Quarter: 2025Q4

REPORT INFORMATION
  Report Type: Spontaneous
  Country: US (occurrence: US)
  Receive Date: 20251223
  Receipt Date: 20251223
  Transmission Date: 20260118
  Serious: No
  Sender: FRESENIUS KABI
  Company Number: US-FreseniusKabi-FK202517115

PATIENT

DRUGS (1)
  1. POTASSIUM CHLORIDE [Suspect]
     Active Substance: POTASSIUM CHLORIDE
     Indication: Product used for unknown indication
     Dosage: FOA: INJECTION?2 MEQ/ML (20 ML VIAL),

REACTIONS (1)
  - Therapeutic product effect decreased [Unknown]
